FAERS Safety Report 7893982-7 (Version None)
Quarter: 2011Q4

REPORT INFORMATION
  Report Type: 
  Country: None (occurrence: None)
  Receive Date: 20111104
  Receipt Date: 20111103
  Transmission Date: 20120403
  Serious: Yes (Other)
  Sender: FDA-Public Use
  Company Number: US-PFIZER INC-2011250431

PATIENT
  Sex: Male
  Weight: 80 kg

DRUGS (2)
  1. BENEFIX [Suspect]
     Indication: FACTOR IX DEFICIENCY
     Dosage: UNK
     Dates: start: 20000101
  2. BENEFIX [Suspect]
     Dosage: 2000 IU, DAILY

REACTIONS (2)
  - RASH PRURITIC [None]
  - HYPERSENSITIVITY [None]
